FAERS Safety Report 12627780 (Version 1)
Quarter: 2016Q3

REPORT INFORMATION
  Report Type: Spontaneous
  Country: US (occurrence: US)
  Receive Date: 20160806
  Receipt Date: 20160806
  Transmission Date: 20161109
  Serious: Yes (Other)
  Sender: FDA-Public Use
  Company Number: US-SUN PHARMACEUTICAL INDUSTRIES LTD-2015US-105190

PATIENT
  Sex: Female
  Weight: 132 kg

DRUGS (1)
  1. TRAMADOL. [Suspect]
     Active Substance: TRAMADOL
     Indication: PAIN
     Dosage: 1 DF, QD
     Route: 065
     Dates: start: 2015, end: 2015

REACTIONS (2)
  - Drug hypersensitivity [Unknown]
  - Hallucination, tactile [Unknown]

NARRATIVE: CASE EVENT DATE: 2015
